FAERS Safety Report 16388948 (Version 1)
Quarter: 2019Q2

REPORT INFORMATION
  Report Type: Spontaneous
  Country: US (occurrence: US)
  Receive Date: 20190604
  Receipt Date: 20190604
  Transmission Date: 20190711
  Serious: No
  Sender: FDA-Public Use
  Company Number: US-DOVA PHARMACEUTICALS INC.-DOV-000272

PATIENT

DRUGS (2)
  1. AVATROMBOPAG [Suspect]
     Active Substance: AVATROMBOPAG
     Indication: GASTRIC VARICEAL LIGATION
     Dosage: 40 MG, QD FOR 5 DAYS
     Route: 048
  2. AVATROMBOPAG [Suspect]
     Active Substance: AVATROMBOPAG
     Dosage: 40 MG, QD FOR 5 DAYS
     Route: 048

REACTIONS (1)
  - Platelet count decreased [Unknown]
